FAERS Safety Report 5830628-3 (Version None)
Quarter: 2008Q3

REPORT INFORMATION
  Report Type: 
  Country: None (occurrence: None)
  Receive Date: 20080801
  Receipt Date: 20070828
  Transmission Date: 20090109
  Serious: No
  Sender: FDA-Public Use
  Company Number: US-BRISTOL-MYERS SQUIBB COMPANY-13890850

PATIENT
  Sex: Female

DRUGS (2)
  1. COUMADIN [Suspect]
     Indication: PULMONARY EMBOLISM
     Dosage: FROM THE LAST FEW DAYS DOSE CHANGED TO 5 MG DAILY.
  2. TYLENOL PM [Concomitant]

REACTIONS (3)
  - BLOOD PRESSURE DECREASED [None]
  - DIVERTICULITIS [None]
  - DIZZINESS [None]
